FAERS Safety Report 7334964-3 (Version None)
Quarter: 2011Q1

REPORT INFORMATION
  Report Type: 
  Country: None (occurrence: None)
  Receive Date: 20110307
  Receipt Date: 20110224
  Transmission Date: 20110831
  Serious: Yes (Hospitalization)
  Sender: FDA-Public Use
  Company Number: US-ROCHE-762426

PATIENT
  Sex: Female

DRUGS (1)
  1. PEGASYS [Suspect]
     Route: 065

REACTIONS (4)
  - ROAD TRAFFIC ACCIDENT [None]
  - RENAL DISORDER [None]
  - PNEUMOTHORAX TRAUMATIC [None]
  - ANKLE FRACTURE [None]
